FAERS Safety Report 21734698 (Version 2)
Quarter: 2023Q1

REPORT INFORMATION
  Report Type: Spontaneous
  Country: US (occurrence: US)
  Receive Date: 20221215
  Receipt Date: 20230101
  Transmission Date: 20230417
  Serious: Yes (Hospitalization, Other)
  Sender: FDA-Public Use
  Company Number: US-BRISTOL-MYERS SQUIBB COMPANY-2022-139449

PATIENT
  Age: 45 Year
  Sex: Male
  Weight: 107.95 kg

DRUGS (1)
  1. NULOJIX [Suspect]
     Active Substance: BELATACEPT
     Indication: Heart transplant
     Dosage: 5 MG/KG
     Route: 042
     Dates: start: 20220406, end: 20220830

REACTIONS (2)
  - Transplant rejection [Unknown]
  - Cardiac failure congestive [Unknown]
